FAERS Safety Report 16866240 (Version 2)
Quarter: 2019Q4

REPORT INFORMATION
  Report Type: Spontaneous
  Country: FR (occurrence: FR)
  Receive Date: 20190930
  Receipt Date: 20191223
  Transmission Date: 20200122
  Serious: Yes (Other)
  Sender: FDA-Public Use
  Company Number: FR-SA-2019SA268170

PATIENT
  Age: 50 Year
  Sex: Female

DRUGS (1)
  1. AUBAGIO [Suspect]
     Active Substance: TERIFLUNOMIDE
     Dosage: UNK
     Dates: start: 2017

REACTIONS (3)
  - Breast cancer [Unknown]
  - Alopecia [Unknown]
  - Paraesthesia [Unknown]
